FAERS Safety Report 4799690-3 (Version None)
Quarter: 2005Q4

REPORT INFORMATION
  Report Type: 
  Country: None (occurrence: None)
  Receive Date: 20051013
  Receipt Date: 20050927
  Transmission Date: 20060501
  Serious: Yes (Hospitalization)
  Sender: FDA-Public Use
  Company Number: 2005135550

PATIENT
  Age: 69 Year
  Sex: Male

DRUGS (5)
  1. DIFLUCAN [Suspect]
     Indication: IDIOPATHIC THROMBOCYTOPENIC PURPURA
     Dosage: 100 MG , ORAL
     Route: 048
     Dates: start: 20000901, end: 20050923
  2. PREDNISOLONE [Concomitant]
  3. SYMMETREL [Concomitant]
  4. LEVODOPA-CARBIDOPA (CARBIDOPA, LEVODOPA) [Concomitant]
  5. CEROCRAL (IFENPRODIL TARTRATE) [Concomitant]

REACTIONS (5)
  - APHASIA [None]
  - CONDITION AGGRAVATED [None]
  - DYSPHAGIA [None]
  - PARALYSIS [None]
  - PARKINSONISM [None]
